FAERS Safety Report 23201168 (Version 1)
Quarter: 2023Q4

REPORT INFORMATION
  Report Type: Spontaneous
  Country: LT (occurrence: LT)
  Receive Date: 20231118
  Receipt Date: 20231118
  Transmission Date: 20240109
  Serious: Yes (Hospitalization)
  Sender: FDA-Public Use
  Company Number: None

PATIENT
  Age: 56 Year
  Sex: Male
  Weight: 130 kg

DRUGS (9)
  1. METFORMIN [Interacting]
     Active Substance: METFORMIN HYDROCHLORIDE
     Indication: Type 2 diabetes mellitus
     Dosage: METFORMIN 850MG TABLET
     Dates: start: 20230829, end: 20231007
  2. BISOPROLOL [Concomitant]
     Active Substance: BISOPROLOL\BISOPROLOL FUMARATE
     Indication: Essential hypertension
     Dosage: BISOPROLOL 10MG TABLET
     Dates: start: 20230905, end: 20231007
  3. BISOPROLOL [Concomitant]
     Active Substance: BISOPROLOL\BISOPROLOL FUMARATE
     Indication: Tachycardia
  4. Amlodipine/Valsartan/Hydrochloorthiazide Teva [Concomitant]
     Indication: Essential hypertension
     Dosage: AMLODIPINE/VALSARTAN/HYDROCHLOORTHIAZIDE TEVA 10 MG/160 MG/25 MG
     Dates: start: 20230905, end: 20231007
  5. DAPAGLIFLOZIN [Concomitant]
     Active Substance: DAPAGLIFLOZIN
     Indication: Type 2 diabetes mellitus
     Dosage: DAPAGLIFLOZIN 10MG TABLET
     Dates: start: 20230905, end: 20231007
  6. LEVOTHYROXINE [Concomitant]
     Active Substance: LEVOTHYROXINE
     Indication: Hypothyroidism
     Dosage: LEVOTHYROXINE 25UG TABLET
     Dates: start: 20221222, end: 20231007
  7. LEVOTHYROXINE [Concomitant]
     Active Substance: LEVOTHYROXINE
     Indication: Thyroiditis chronic
  8. GLICLAZIDE [Concomitant]
     Active Substance: GLICLAZIDE
     Indication: Type 2 diabetes mellitus
     Dosage: GLICLAZIDE 60MG TABLET
     Dates: start: 20230905, end: 20231007
  9. LANTUS [Concomitant]
     Active Substance: INSULIN GLARGINE
     Indication: Diabetic metabolic decompensation
     Dosage: LANTUS 100 U/ML
     Dates: start: 20230828, end: 20231007

REACTIONS (12)
  - Lactic acidosis [Recovering/Resolving]
  - Hyperkalaemia [Recovering/Resolving]
  - Diabetic ketoacidosis [Recovering/Resolving]
  - Metabolic acidosis [Recovering/Resolving]
  - Arrhythmia supraventricular [Recovering/Resolving]
  - Chronic kidney disease [Recovering/Resolving]
  - Acute kidney injury [Recovering/Resolving]
  - Oliguria [Recovering/Resolving]
  - Respiratory failure [Recovering/Resolving]
  - Alcohol interaction [Recovering/Resolving]
  - Bradycardia [Recovering/Resolving]
  - Azotaemia [Recovering/Resolving]

NARRATIVE: CASE EVENT DATE: 20231007
